FAERS Safety Report 20499779 (Version 1)
Quarter: 2022Q1

REPORT INFORMATION
  Report Type: Spontaneous
  Country: FR (occurrence: FR)
  Receive Date: 20220222
  Receipt Date: 20220222
  Transmission Date: 20220424
  Serious: Yes (Hospitalization, Congenital Anomaly, Other)
  Sender: FDA-Public Use
  Company Number: FR-ABBVIE-22K-056-4283242-00

PATIENT
  Sex: Female

DRUGS (2)
  1. VALPROATE SODIUM [Suspect]
     Active Substance: VALPROATE SODIUM
     Indication: Maternal exposure timing unspecified
     Route: 064
  2. ESCITALOPRAM OXALATE [Concomitant]
     Active Substance: ESCITALOPRAM OXALATE
     Indication: Product used for unknown indication

REACTIONS (12)
  - Psychomotor retardation [Unknown]
  - Gastrooesophageal reflux disease [Unknown]
  - Ear, nose and throat infection [Unknown]
  - Haemangioma [Unknown]
  - Heterophoria [Unknown]
  - Pharyngeal abscess [Unknown]
  - Congenital foot malformation [Unknown]
  - Hypertelorism [Unknown]
  - Hypotonia [Recovering/Resolving]
  - Skull malformation [Unknown]
  - Bronchitis [Unknown]
  - Foetal exposure during pregnancy [Unknown]

NARRATIVE: CASE EVENT DATE: 20160201
